FAERS Safety Report 7105875-3 (Version None)
Quarter: 2010Q4

REPORT INFORMATION
  Report Type: 
  Country: None (occurrence: None)
  Receive Date: 20101116
  Receipt Date: 20101108
  Transmission Date: 20110411
  Serious: Yes (Hospitalization, Congenital Anomaly)
  Sender: FDA-Public Use
  Company Number: A0881197A

PATIENT
  Sex: Male

DRUGS (1)
  1. PAXIL [Suspect]
     Dosage: 20MG UNKNOWN

REACTIONS (2)
  - DRUG EXPOSURE DURING PREGNANCY [None]
  - SPINA BIFIDA [None]
